FAERS Safety Report 15988773 (Version 8)
Quarter: 2019Q2

REPORT INFORMATION
  Report Type: Report from Study
  Country: US (occurrence: US)
  Receive Date: 20190221
  Receipt Date: 20190621
  Transmission Date: 20190711
  Serious: Yes (Other)
  Sender: FDA-Public Use
  Company Number: US-TESARO-2019-TSO00531-US

PATIENT
  Sex: Female

DRUGS (7)
  1. TYLENOL [Concomitant]
     Active Substance: ACETAMINOPHEN
     Indication: PAIN
     Dosage: UNK, PRN
  2. ZEJULA [Suspect]
     Active Substance: NIRAPARIB
     Indication: OVARIAN CANCER
     Dosage: 200 MG, QPM
     Route: 065
     Dates: start: 20190123, end: 20190225
  3. ZEJULA [Suspect]
     Active Substance: NIRAPARIB
     Dosage: 200 MG, QD AT 9PM WITHOUT FOOD
     Route: 048
     Dates: start: 20190320, end: 20190409
  4. LOVENOX [Concomitant]
     Active Substance: ENOXAPARIN SODIUM
     Indication: PRODUCT USED FOR UNKNOWN INDICATION
     Dosage: UNK
  5. ZEJULA [Suspect]
     Active Substance: NIRAPARIB
     Dosage: 200 MG, QPM W/O FOOD
     Dates: start: 20190418
  6. ELIQUIS [Concomitant]
     Active Substance: APIXABAN
     Indication: PRODUCT USED FOR UNKNOWN INDICATION
     Dosage: 5 MG, BID
  7. ZEJULA [Suspect]
     Active Substance: NIRAPARIB
     Dosage: 300 MG, QD
     Route: 065
     Dates: start: 20190226, end: 20190319

REACTIONS (20)
  - Candida infection [Unknown]
  - Anaemia [Not Recovered/Not Resolved]
  - Cognitive disorder [Unknown]
  - Asthenia [Recovering/Resolving]
  - Thrombosis [Unknown]
  - Oral pain [Recovered/Resolved]
  - Nasopharyngitis [Recovered/Resolved]
  - Heart rate increased [Not Recovered/Not Resolved]
  - Abdominal pain upper [Not Recovered/Not Resolved]
  - Back pain [Recovered/Resolved]
  - Headache [Recovering/Resolving]
  - Drug ineffective [Unknown]
  - Tongue dry [Unknown]
  - Nausea [Unknown]
  - Product dose omission [Unknown]
  - Allergic cough [Recovered/Resolved]
  - Vomiting [Unknown]
  - Malignant neoplasm progression [Unknown]
  - Infection [Unknown]
  - Dry mouth [Not Recovered/Not Resolved]
